FAERS Safety Report 19077154 (Version 1)
Quarter: 2021Q1

REPORT INFORMATION
  Report Type: Spontaneous
  Country: CA (occurrence: CA)
  Receive Date: 20210331
  Receipt Date: 20210331
  Transmission Date: 20210420
  Serious: Yes (Other)
  Sender: FDA-Public Use
  Company Number: CA-ORION CORPORATION ORION PHARMA-21_00013817

PATIENT
  Age: 61 Year
  Sex: Female

DRUGS (9)
  1. METHOTREXATE (TRADE NAME UNKNOWN) [Suspect]
     Active Substance: METHOTREXATE
     Indication: PRODUCT USED FOR UNKNOWN INDICATION
     Route: 065
  2. MEFENAMIC ACID. [Concomitant]
     Active Substance: MEFENAMIC ACID
     Route: 065
  3. HYDROXYCHLOROQUINE [Suspect]
     Active Substance: HYDROXYCHLOROQUINE
     Indication: PRODUCT USED FOR UNKNOWN INDICATION
     Route: 065
  4. TYLENOL [Concomitant]
     Active Substance: ACETAMINOPHEN
     Route: 065
  5. VITAMIN D [ERGOCALCIFEROL] [Concomitant]
     Active Substance: ERGOCALCIFEROL
     Route: 065
  6. ERELZI [Suspect]
     Active Substance: ETANERCEPT-SZZS
     Indication: PRODUCT USED FOR UNKNOWN INDICATION
     Route: 058
  7. GLUCOSAMINE SULFATE [Concomitant]
     Active Substance: GLUCOSAMINE SULFATE
     Route: 065
  8. OMEGA 3 [FISH OIL] [Concomitant]
     Active Substance: FISH OIL
     Route: 065
  9. CURCUMIN [Concomitant]
     Active Substance: CURCUMIN
     Route: 065

REACTIONS (6)
  - Headache [Unknown]
  - Cough [Unknown]
  - Polyarthritis [Unknown]
  - Neuralgia [Unknown]
  - Hypersensitivity [Unknown]
  - Rhinorrhoea [Unknown]
